FAERS Safety Report 24915511 (Version 1)
Quarter: 2025Q1

REPORT INFORMATION
  Report Type: Spontaneous
  Country: US (occurrence: US)
  Receive Date: 20250203
  Receipt Date: 20250203
  Transmission Date: 20250408
  Serious: Yes (Hospitalization, Other)
  Sender: CADILA
  Company Number: US-CPL-004950

PATIENT
  Age: 25 Year
  Sex: Male

DRUGS (2)
  1. ERYTHROMYCIN [Suspect]
     Active Substance: ERYTHROMYCIN
     Indication: Pneumonia
  2. DOXYCYCLINE [Suspect]
     Active Substance: DOXYCYCLINE
     Indication: Pneumonia

REACTIONS (2)
  - Rhabdomyolysis [Recovering/Resolving]
  - Prescription drug used without a prescription [Unknown]
